FAERS Safety Report 6230174-1 (Version None)
Quarter: 2009Q2

REPORT INFORMATION
  Report Type: 
  Country: None (occurrence: None)
  Receive Date: 20090615
  Receipt Date: 20090604
  Transmission Date: 20091009
  Serious: Yes (Other)
  Sender: FDA-Public Use
  Company Number: FI-JNJFOC-20090601649

PATIENT
  Sex: Female

DRUGS (1)
  1. CAELYX [Suspect]
     Indication: OVARIAN CANCER
     Dosage: CYCLE 1
     Route: 042

REACTIONS (2)
  - ABDOMINAL PAIN UPPER [None]
  - TUMOUR MARKER INCREASED [None]
